FAERS Safety Report 8199393-1 (Version None)
Quarter: 2012Q1

REPORT INFORMATION
  Report Type: 
  Country: None (occurrence: None)
  Receive Date: 20120309
  Receipt Date: 20120229
  Transmission Date: 20120608
  Serious: Yes (Other)
  Sender: FDA-Public Use
  Company Number: CA-ROCHE-GNE323941

PATIENT
  Sex: Male

DRUGS (5)
  1. SINGULAIR [Concomitant]
     Indication: PRODUCT USED FOR UNKNOWN INDICATION
  2. XOLAIR [Suspect]
     Indication: RHINITIS
  3. VENTOLIN [Concomitant]
  4. ADVAIR DISKUS 100/50 [Concomitant]
     Indication: PRODUCT USED FOR UNKNOWN INDICATION
  5. XOLAIR [Suspect]
     Indication: ASTHMA
     Dosage: 225 MG, Q2W
     Route: 058
     Dates: start: 20110525

REACTIONS (9)
  - BLOOD PRESSURE INCREASED [None]
  - MALAISE [None]
  - COUGH [None]
  - SLEEP DISORDER [None]
  - NASOPHARYNGITIS [None]
  - DYSPNOEA [None]
  - FATIGUE [None]
  - DISCOMFORT [None]
  - NASAL CONGESTION [None]
